FAERS Safety Report 4774924-X (Version None)
Quarter: 2005Q3

REPORT INFORMATION
  Report Type: 
  Country: None (occurrence: None)
  Receive Date: 20050919
  Receipt Date: 20050907
  Transmission Date: 20060218
  Serious: Yes (Hospitalization, Other)
  Sender: FDA-Public Use
  Company Number: 2005114524

PATIENT
  Age: 12 Year
  Sex: Male
  Weight: 44 kg

DRUGS (6)
  1. VORICONAZOLE (VORICONAZOLE) [Suspect]
     Indication: FUSARIUM INFECTION
     Dosage: SEE IMAGE
     Route: 042
     Dates: start: 20040728, end: 20050811
  2. VORICONAZOLE (VORICONAZOLE) [Suspect]
     Indication: FUSARIUM INFECTION
     Dosage: SEE IMAGE
     Route: 042
     Dates: start: 20050214
  3. VORICONAZOLE (VORICONAZOLE) [Suspect]
     Indication: FUSARIUM INFECTION
     Dosage: 400 MG (200 MG), ORAL
     Route: 048
  4. NAPROXEN [Concomitant]
  5. OMEPRAZOLE [Concomitant]
  6. CASPOFUNGIN (CASPOFUNGIN) [Concomitant]

REACTIONS (4)
  - BLOOD AMYLASE INCREASED [None]
  - EATING DISORDER [None]
  - LIPASE INCREASED [None]
  - PANCREATITIS [None]
